FAERS Safety Report 14900185 (Version 1)
Quarter: 2018Q2

REPORT INFORMATION
  Report Type: Spontaneous
  Country: FR (occurrence: FR)
  Receive Date: 20180516
  Receipt Date: 20180516
  Transmission Date: 20180711
  Serious: Yes (Other)
  Sender: FDA-Public Use
  Company Number: FR-MERCK KGAA-2047899

PATIENT
  Age: 37 Year
  Sex: Female

DRUGS (1)
  1. NOVOTHYROX [Suspect]
     Active Substance: LEVOTHYROXINE SODIUM
     Indication: AUTOIMMUNE THYROIDITIS

REACTIONS (7)
  - Mental fatigue [None]
  - Malaise [None]
  - Blood thyroid stimulating hormone increased [None]
  - Depressed mood [None]
  - Nausea [None]
  - Delirium [None]
  - Dizziness [Recovered/Resolved]

NARRATIVE: CASE EVENT DATE: 20170727
